FAERS Safety Report 5621927-9 (Version None)
Quarter: 2008Q1

REPORT INFORMATION
  Report Type: 
  Country: None (occurrence: None)
  Receive Date: 20080206
  Receipt Date: 20080125
  Transmission Date: 20080703
  Serious: Yes (Death, Hospitalization)
  Sender: FDA-Public Use
  Company Number: GXKR2007GB01769

PATIENT
  Age: 91 Year
  Sex: Male

DRUGS (10)
  1. SIMVASTATIN [Suspect]
     Indication: CARDIOVASCULAR DISORDER
     Dosage: 40 MG, ORAL
     Route: 048
     Dates: start: 20061112, end: 20061230
  2. ALLOPURINOL (ALLOPRUINOL) [Concomitant]
  3. AMLODIPINE [Concomitant]
  4. BISOPROLOL FUMARATE [Concomitant]
  5. CLOPIDOGREL [Concomitant]
  6. ESOMEPRAZOLE (ESOMEPRAZOLE) [Concomitant]
  7. NICORANDIL (NICORANDIL) [Concomitant]
  8. LEVOTHYROXINE SODIUM [Concomitant]
  9. FUROSEMIDE [Concomitant]
  10. TAMSULOSIN HCL [Concomitant]

REACTIONS (9)
  - CLOSTRIDIAL INFECTION [None]
  - COLITIS [None]
  - GASTROINTESTINAL HAEMORRHAGE [None]
  - GENERAL PHYSICAL HEALTH DETERIORATION [None]
  - GLOMERULONEPHRITIS ACUTE [None]
  - PANCREATITIS [None]
  - PLEURAL EFFUSION [None]
  - RENAL FAILURE [None]
  - RHABDOMYOLYSIS [None]
